FAERS Safety Report 23576729 (Version 2)
Quarter: 2024Q4

REPORT INFORMATION
  Report Type: Report from Study
  Country: DE (occurrence: DE)
  Receive Date: 20240228
  Receipt Date: 20241212
  Transmission Date: 20250115
  Serious: Yes (Hospitalization)
  Sender: PFIZER
  Company Number: DE-ROCHE-3414126

PATIENT
  Age: 56 Year
  Sex: Female
  Weight: 70 kg

DRUGS (16)
  1. TRASTUZUMAB [Suspect]
     Active Substance: TRASTUZUMAB
     Indication: Breast cancer
     Dosage: 840 MG, CYCLIC
     Dates: start: 20230804
  2. TRASTUZUMAB [Suspect]
     Active Substance: TRASTUZUMAB
     Dosage: 567 MG, CYCLIC
     Dates: start: 20230804
  3. TRASTUZUMAB [Suspect]
     Active Substance: TRASTUZUMAB
     Dosage: 420 MG, CYCLIC
     Dates: start: 20230823
  4. TRASTUZUMAB [Suspect]
     Active Substance: TRASTUZUMAB
     Dosage: 420 MG, CYCLIC
     Dates: start: 20230913, end: 20231121
  5. CARBOPLATIN [Suspect]
     Active Substance: CARBOPLATIN
     Indication: Breast cancer
     Dosage: 470 MG, CYCLIC
     Dates: start: 20230804
  6. CARBOPLATIN [Suspect]
     Active Substance: CARBOPLATIN
     Dosage: 485 MG, CYCLIC
     Dates: start: 20230804
  7. CARBOPLATIN [Suspect]
     Active Substance: CARBOPLATIN
     Dosage: 530 MG, CYCLIC
     Dates: start: 20230913, end: 20231121
  8. PACLITAXEL [Suspect]
     Active Substance: PACLITAXEL
     Indication: Breast cancer
     Dosage: 138 MG, CYCLIC
     Dates: start: 20230804
  9. PACLITAXEL [Suspect]
     Active Substance: PACLITAXEL
     Dosage: 143.2 MG, CYCLIC
     Dates: start: 20231031, end: 20231205
  10. PERJETA [Suspect]
     Active Substance: PERTUZUMAB
     Indication: Breast cancer
     Dosage: 840 MG, CYCLIC
     Dates: start: 20230804
  11. PERJETA [Suspect]
     Active Substance: PERTUZUMAB
     Dosage: 567 MG, CYCLIC
     Dates: start: 20230804
  12. PERJETA [Suspect]
     Active Substance: PERTUZUMAB
     Dosage: 420 MG, CYCLIC
     Dates: start: 20230823
  13. PERJETA [Suspect]
     Active Substance: PERTUZUMAB
     Dosage: 420 MG, CYCLIC
     Dates: start: 20231024, end: 20231121
  14. VAGISAN [DL- LACTIC ACID;SODIUM LACTATE] [Concomitant]
     Dosage: UNK
     Dates: start: 202309, end: 202312
  15. ALDIAMED MOUTH GEL [Concomitant]
     Dosage: UNK
     Route: 048
     Dates: start: 202309
  16. LOPERAMIDE [Concomitant]
     Active Substance: LOPERAMIDE
     Dosage: UNK
     Route: 048
     Dates: start: 202311, end: 202407

REACTIONS (3)
  - Vertigo [Recovered/Resolved]
  - Diarrhoea [Not Recovered/Not Resolved]
  - Fatigue [Recovered/Resolved]

NARRATIVE: CASE EVENT DATE: 20230913
